FAERS Safety Report 5059813-8 (Version None)
Quarter: 2006Q3

REPORT INFORMATION
  Report Type: 
  Country: None (occurrence: None)
  Receive Date: 20060724
  Receipt Date: 20060713
  Transmission Date: 20061208
  Serious: Yes (Hospitalization, Other)
  Sender: FDA-Public Use
  Company Number: DE-JNJFOC-20060700186

PATIENT
  Sex: Female
  Weight: 50 kg

DRUGS (3)
  1. IMODIUM [Suspect]
     Indication: DRUG USE FOR UNKNOWN INDICATION
     Route: 048
  2. DICLOFENAC [Suspect]
     Indication: DRUG USE FOR UNKNOWN INDICATION
     Route: 048
  3. FLUOXETINE [Suspect]
     Indication: DRUG USE FOR UNKNOWN INDICATION
     Route: 048

REACTIONS (3)
  - FATIGUE [None]
  - MULTIPLE DRUG OVERDOSE INTENTIONAL [None]
  - SUICIDE ATTEMPT [None]
